FAERS Safety Report 24843153 (Version 2)
Quarter: 2025Q1

REPORT INFORMATION
  Report Type: Report from Study
  Country: US (occurrence: US)
  Receive Date: 20250115
  Receipt Date: 20250213
  Transmission Date: 20250408
  Serious: Yes (Hospitalization, Other)
  Sender: INSMED
  Company Number: US-INSMED, INC.-2024-04745-US

PATIENT
  Age: 84 Year
  Sex: Female

DRUGS (1)
  1. ARIKAYCE [Suspect]
     Active Substance: AMIKACIN
     Indication: Mycobacterium avium complex infection
     Dosage: 590 MILLIGRAM, QD
     Route: 055
     Dates: start: 202411

REACTIONS (4)
  - Hospitalisation [Unknown]
  - Deafness [Unknown]
  - Productive cough [Not Recovered/Not Resolved]
  - Dysphonia [Not Recovered/Not Resolved]

NARRATIVE: CASE EVENT DATE: 20241101
